FAERS Safety Report 6730723-0 (Version None)
Quarter: 2010Q2

REPORT INFORMATION
  Report Type: 
  Country: None (occurrence: None)
  Receive Date: 20100518
  Receipt Date: 20100507
  Transmission Date: 20101027
  Serious: Yes (Hospitalization, Other)
  Sender: FDA-Public Use
  Company Number: US-BAYER-201015248NA

PATIENT
  Age: 25 Year
  Sex: Female
  Weight: 61 kg

DRUGS (5)
  1. YASMIN [Suspect]
     Indication: CONTRACEPTION
     Route: 048
     Dates: start: 20051219, end: 20080101
  2. OCELLA [Suspect]
     Indication: CONTRACEPTION
     Route: 048
     Dates: end: 20090101
  3. MIDRIN [Concomitant]
  4. VITAMIN C [Concomitant]
  5. NSAIDS [Concomitant]

REACTIONS (10)
  - ABDOMINAL PAIN [None]
  - CHOLECYSTITIS CHRONIC [None]
  - DIARRHOEA [None]
  - FAECAL INCONTINENCE [None]
  - FAT INTOLERANCE [None]
  - FLATULENCE [None]
  - HAEMATOCHEZIA [None]
  - IRRITABLE BOWEL SYNDROME [None]
  - NAUSEA [None]
  - VOMITING [None]
